FAERS Safety Report 6290372-8 (Version None)
Quarter: 2009Q3

REPORT INFORMATION
  Report Type: 
  Country: None (occurrence: None)
  Receive Date: 20090728
  Receipt Date: 20090728
  Transmission Date: 20100115
  Serious: Yes (Hospitalization)
  Sender: FDA-Public Use
  Company Number: None

PATIENT
  Age: 62 Year
  Sex: Female
  Weight: 90.7194 kg

DRUGS (2)
  1. MIRAPEX [Suspect]
     Indication: RESTLESS LEGS SYNDROME
     Dosage: 1 PILL EA OF 5 NIGHTS PO
     Route: 048
     Dates: start: 20090714, end: 20090718
  2. MIRAPEX [Suspect]
     Indication: RESTLESS LEGS SYNDROME
     Dosage: 1 PILL EA OF 5 NIGHTS PO
     Route: 048
     Dates: start: 20090719, end: 20090723

REACTIONS (4)
  - HEADACHE [None]
  - NAUSEA [None]
  - THIRST [None]
  - VOMITING [None]
